FAERS Safety Report 14312099 (Version 1)
Quarter: 2017Q4

REPORT INFORMATION
  Report Type: Spontaneous
  Country: US (occurrence: US)
  Receive Date: 20171221
  Receipt Date: 20171221
  Transmission Date: 20180321
  Serious: No
  Sender: FDA-Public Use
  Company Number: US-BRISTOL-MYERS SQUIBB COMPANY-BMS-2017-115829

PATIENT
  Sex: Male
  Weight: 95.25 kg

DRUGS (1)
  1. ELIQUIS [Suspect]
     Active Substance: APIXABAN
     Indication: EMBOLISM VENOUS
     Dosage: UNK UNK, BID
     Route: 048
     Dates: start: 2017

REACTIONS (3)
  - Pruritus [Unknown]
  - Hypoaesthesia [Unknown]
  - Paraesthesia [Unknown]
